FAERS Safety Report 7265600-2 (Version None)
Quarter: 2011Q1

REPORT INFORMATION
  Report Type: 
  Country: None (occurrence: None)
  Receive Date: 20110131
  Receipt Date: 20110120
  Transmission Date: 20110831
  Serious: Yes (Other)
  Sender: FDA-Public Use
  Company Number: AT-BAYER-201047736GPV

PATIENT
  Sex: Female
  Weight: 65 kg

DRUGS (3)
  1. MIRENA [Suspect]
     Indication: CONTRACEPTION
     Dosage: 20 MCG/24HR, CONT
     Route: 015
     Dates: start: 19980101, end: 20030918
  2. MIRENA [Suspect]
     Dosage: 20 MCG/24HR, CONT
     Route: 015
     Dates: start: 20081017, end: 20101202
  3. MIRENA [Suspect]
     Dosage: 20 MCG/24HR, CONT
     Route: 015
     Dates: start: 20030918, end: 20081017

REACTIONS (3)
  - BREAST CANCER FEMALE [None]
  - OESTROGEN RECEPTOR ASSAY POSITIVE [None]
  - PROGESTERONE RECEPTOR ASSAY POSITIVE [None]
